FAERS Safety Report 5402365-0 (Version None)
Quarter: 2007Q3

REPORT INFORMATION
  Report Type: 
  Country: None (occurrence: None)
  Receive Date: 20070730
  Receipt Date: 20070712
  Transmission Date: 20080115
  Serious: Yes (Other)
  Sender: FDA-Public Use
  Company Number: DSA_30290_2007

PATIENT
  Age: 80 Year
  Sex: Female

DRUGS (1)
  1. DILTIAZEM HYDROCHLORIDE [Suspect]
     Dosage: (DF)

REACTIONS (3)
  - CAUSTIC INJURY [None]
  - FOREIGN BODY TRAUMA [None]
  - OESOPHAGITIS [None]
